FAERS Safety Report 18351055 (Version 2)
Quarter: 2024Q1

REPORT INFORMATION
  Report Type: Spontaneous
  Country: DE (occurrence: DE)
  Receive Date: 20201006
  Receipt Date: 20240116
  Transmission Date: 20240410
  Serious: Yes (Other)
  Sender: FDA-Public Use
  Company Number: DE-SA-2020SA272635

PATIENT
  Age: 77 Year
  Sex: Female
  Weight: 80 kg

DRUGS (8)
  1. RISPERIDONE [Suspect]
     Active Substance: RISPERIDONE
     Indication: Delusion
     Dosage: 1.5 MG, QD
  2. OLANZAPINE [Interacting]
     Active Substance: OLANZAPINE
     Indication: Delusion
     Dosage: 15 MG, QD
     Route: 048
  3. OLANZAPINE [Interacting]
     Active Substance: OLANZAPINE
     Dosage: 10 MG, QD
  4. NICOTINE [Interacting]
     Active Substance: NICOTINE
     Dosage: UNK
     Route: 062
  5. AMISULPRIDE [Suspect]
     Active Substance: AMISULPRIDE
     Indication: Delusion
     Dosage: 200 MG, BID
     Route: 048
  6. ATORVASTATIN [Concomitant]
     Active Substance: ATORVASTATIN
     Dosage: 10 MG, QD
     Route: 048
  7. RIVASTIGMINE [Concomitant]
     Active Substance: RIVASTIGMINE
     Dosage: 9.5 G, QD
     Route: 062
  8. AMPICILLIN SODIUM\SULBACTAM SODIUM [Concomitant]
     Active Substance: AMPICILLIN SODIUM\SULBACTAM SODIUM
     Indication: Pneumonia
     Dosage: UNK

REACTIONS (4)
  - Electrocardiogram QT prolonged [Recovering/Resolving]
  - Tobacco interaction [Unknown]
  - Overdose [Unknown]
  - Transaminases increased [Unknown]
